FAERS Safety Report 7420227-4 (Version None)
Quarter: 2011Q2

REPORT INFORMATION
  Report Type: 
  Country: None (occurrence: None)
  Receive Date: 20110418
  Receipt Date: 20110405
  Transmission Date: 20111010
  Serious: Yes (Life-Threatening, Other)
  Sender: FDA-Public Use
  Company Number: DE-ACTELION-A-US2011-47410

PATIENT

DRUGS (1)
  1. VENTAVIS [Suspect]
     Indication: PULMONARY HYPERTENSION
     Dosage: 20 UG, BID
     Route: 055
     Dates: start: 20110321, end: 20110321

REACTIONS (2)
  - HAEMOTHORAX [None]
  - THORACOTOMY [None]
